FAERS Safety Report 12010898 (Version 1)
Quarter: 2016Q1

REPORT INFORMATION
  Report Type: Other
  Country: BR (occurrence: BR)
  Receive Date: 20160205
  Receipt Date: 20160205
  Transmission Date: 20160526
  Serious: Yes (Disabling, Other)
  Sender: FDA-Public Use
  Company Number: BR-SHIRE-BR201601274

PATIENT
  Sex: Male
  Weight: 28 kg

DRUGS (2)
  1. LUFTAL                             /00159501/ [Concomitant]
     Indication: PRODUCT USED FOR UNKNOWN INDICATION
     Dosage: UNK, UNKNOWN
     Route: 065
  2. ELAPRASE [Suspect]
     Active Substance: IDURSULFASE
     Indication: MUCOPOLYSACCHARIDOSIS II
     Dosage: 18 MG (3 VIALS), 1X/WEEK
     Route: 041

REACTIONS (6)
  - Cardiac failure [Not Recovered/Not Resolved]
  - Walking disability [Not Recovered/Not Resolved]
  - Atrophy [Recovering/Resolving]
  - Fatigue [Not Recovered/Not Resolved]
  - Dyspnoea [Not Recovered/Not Resolved]
  - Nervousness [Not Recovered/Not Resolved]

NARRATIVE: CASE EVENT DATE: 2015
